FAERS Safety Report 6838188-5 (Version None)
Quarter: 2010Q3

REPORT INFORMATION
  Report Type: 
  Country: None (occurrence: None)
  Receive Date: 20100713
  Receipt Date: 20070601
  Transmission Date: 20110219
  Serious: No
  Sender: FDA-Public Use
  Company Number: US-PFIZER INC-2007046473

PATIENT
  Sex: Female
  Weight: 86.2 kg

DRUGS (4)
  1. CHANTIX [Suspect]
     Indication: SMOKING CESSATION THERAPY
     Dates: start: 20070501, end: 20070501
  2. PROZAC [Concomitant]
  3. CARDIOVASCULAR SYSTEM DRUGS [Concomitant]
     Indication: HYPERTENSION
  4. ALL OTHER THERAPEUTIC PRODUCTS [Concomitant]

REACTIONS (2)
  - NAUSEA [None]
  - VOMITING [None]
